FAERS Safety Report 22647108 (Version 1)
Quarter: 2023Q2

REPORT INFORMATION
  Report Type: Spontaneous
  Country: JP (occurrence: JP)
  Receive Date: 20230627
  Receipt Date: 20230627
  Transmission Date: 20230721
  Serious: Yes (Other)
  Sender: FDA-Public Use
  Company Number: JP-Covis Pharma-18642

PATIENT
  Age: 64 Year
  Sex: Male

DRUGS (13)
  1. CICLESONIDE [Suspect]
     Active Substance: CICLESONIDE
     Indication: COVID-19
  2. NAFAMOSTAT [Suspect]
     Active Substance: NAFAMOSTAT
     Indication: COVID-19
  3. METHYLPREDNISOLONE [Suspect]
     Active Substance: METHYLPREDNISOLONE
     Indication: COVID-19
     Dosage: 80 MG/DAY INITIATED ON THE DAY OF ADMISSION
  4. METHYLPREDNISOLONE [Suspect]
     Active Substance: METHYLPREDNISOLONE
     Dosage: 20 MG/DAY FOR SEVERAL DAYS
  5. FAVIPIRAVIR [Suspect]
     Active Substance: FAVIPIRAVIR
     Dosage: ON FIRST DAY OF HOSPITALIZATION
  6. FAVIPIRAVIR [Suspect]
     Active Substance: FAVIPIRAVIR
     Dosage: FOR 13 ADDITIONAL DAYS
  7. HYDROXYCHLOROQUINE [Suspect]
     Active Substance: HYDROXYCHLOROQUINE
     Indication: COVID-19
  8. PIPERACILLIN SODIUM\TAZOBACTAM SODIUM [Suspect]
     Active Substance: PIPERACILLIN SODIUM\TAZOBACTAM SODIUM
     Indication: Antibiotic prophylaxis
  9. IVERMECTIN [Suspect]
     Active Substance: IVERMECTIN
     Indication: COVID-19
  10. TOCILIZUMAB [Suspect]
     Active Substance: TOCILIZUMAB
     Indication: COVID-19
  11. HEPARIN [Suspect]
     Active Substance: HEPARIN SODIUM
     Indication: Pulmonary artery thrombosis
  12. HUMAN IMMUNOGLOBULIN G [Suspect]
     Active Substance: HUMAN IMMUNOGLOBULIN G
     Indication: COVID-19
  13. AZITHROMYCIN [Suspect]
     Active Substance: AZITHROMYCIN
     Indication: Antibiotic prophylaxis

REACTIONS (3)
  - Pulmonary artery thrombosis [Recovered/Resolved]
  - Respiratory failure [Recovered/Resolved]
  - Product use in unapproved indication [Unknown]
